FAERS Safety Report 23843660 (Version 3)
Quarter: 2024Q4

REPORT INFORMATION
  Report Type: Spontaneous
  Country: US (occurrence: US)
  Receive Date: 20240510
  Receipt Date: 20241028
  Transmission Date: 20250114
  Serious: No
  Sender: PFIZER
  Company Number: US-PFIZER INC-202400095670

PATIENT
  Age: 70 Year
  Sex: Female

DRUGS (1)
  1. CIBINQO [Suspect]
     Active Substance: ABROCITINIB
     Dosage: 100 MG
     Route: 048

REACTIONS (3)
  - Hypertension [Unknown]
  - Anxiety [Unknown]
  - Pruritus [Recovered/Resolved]
